FAERS Safety Report 5148343-0 (Version None)
Quarter: 2006Q4

REPORT INFORMATION
  Report Type: 
  Country: None (occurrence: None)
  Receive Date: 20061106
  Receipt Date: 20061026
  Transmission Date: 20070319
  Serious: Yes (Hospitalization)
  Sender: FDA-Public Use
  Company Number: 2006132329

PATIENT
  Age: 14 Year
  Sex: Female

DRUGS (1)
  1. ZOLOFT [Suspect]
     Indication: FEELING ABNORMAL
     Dates: start: 20060101

REACTIONS (3)
  - ASTHENIA [None]
  - HYPONATRAEMIA [None]
  - SIGMOIDITIS [None]
